FAERS Safety Report 8208261-8 (Version None)
Quarter: 2012Q1

REPORT INFORMATION
  Report Type: 
  Country: None (occurrence: None)
  Receive Date: 20120314
  Receipt Date: 20120309
  Transmission Date: 20120608
  Serious: Yes (Other)
  Sender: FDA-Public Use
  Company Number: PHHY2012FR020603

PATIENT
  Sex: Male

DRUGS (1)
  1. ONBREZ [Suspect]
     Dosage: 150 UG, DAILY
     Dates: start: 20111222

REACTIONS (4)
  - LOSS OF CONSCIOUSNESS [None]
  - BRONCHOSPASM PARADOXICAL [None]
  - VOMITING [None]
  - MALAISE [None]
